FAERS Safety Report 6415540-3 (Version None)
Quarter: 2009Q4

REPORT INFORMATION
  Report Type: 
  Country: None (occurrence: None)
  Receive Date: 20091022
  Receipt Date: 20091006
  Transmission Date: 20100525
  Serious: Yes (Other)
  Sender: FDA-Public Use
  Company Number: 2009US000571

PATIENT
  Age: 34 Year
  Sex: Female
  Weight: 60.8 kg

DRUGS (11)
  1. PROGRAF [Suspect]
     Indication: RENAL TRANSPLANT
     Dosage: 2 MG, BID, ORAL
     Route: 048
  2. IMMUNOSUPPRESSIVE AGENTS [Concomitant]
  3. AZATHIOPRINE [Concomitant]
  4. PREDNISONE TAB [Concomitant]
  5. LABETALOL HCL [Concomitant]
  6. METHYLDOPA [Concomitant]
  7. BACTRIM [Concomitant]
  8. COLACE (DOCUSATE SODIUM) [Concomitant]
  9. CALCIUM (CALCIUM) [Concomitant]
  10. MULTIVITAMIN [Concomitant]
  11. MAGNESIUM SULFATE [Concomitant]

REACTIONS (8)
  - AMNIOTIC FLUID VOLUME DECREASED [None]
  - CAESAREAN SECTION [None]
  - DRUG EXPOSURE DURING PREGNANCY [None]
  - LIVE BIRTH [None]
  - PLACENTAL DISORDER [None]
  - PREGNANCY [None]
  - PREMATURE BABY [None]
  - PROTEINURIA [None]
